FAERS Safety Report 7759201-7 (Version None)
Quarter: 2011Q3

REPORT INFORMATION
  Report Type: 
  Country: None (occurrence: None)
  Receive Date: 20110919
  Receipt Date: 20110907
  Transmission Date: 20111222
  Serious: Yes (Hospitalization, Other)
  Sender: FDA-Public Use
  Company Number: US-UCBSA-041016

PATIENT
  Age: 33 Year
  Sex: Female

DRUGS (1)
  1. POLYETHYLENE GLYCOL [Suspect]
     Indication: BOWEL PREPARATION
     Dosage: 8 OUNCES; PROCEEDED TO INGEST ANOTHER 8 OUNCES
     Route: 048

REACTIONS (4)
  - DYSPNOEA [None]
  - URTICARIA [None]
  - LARYNGEAL OEDEMA [None]
  - ANAPHYLACTIC REACTION [None]
